FAERS Safety Report 25245667 (Version 1)
Quarter: 2025Q2

REPORT INFORMATION
  Report Type: Spontaneous
  Country: US (occurrence: None)
  Receive Date: 20250426
  Receipt Date: 20250426
  Transmission Date: 20250716
  Serious: Yes (Hospitalization)
  Sender: FDA-CTU
  Company Number: None

PATIENT
  Age: 53 Year
  Sex: Female
  Weight: 103.4 kg

DRUGS (9)
  1. CYCLOPHOSPHAMIDE [Suspect]
     Active Substance: CYCLOPHOSPHAMIDE
     Dates: end: 20240901
  2. CYTARABINE [Suspect]
     Active Substance: CYTARABINE
     Dates: end: 20240922
  3. CYTARABINE [Suspect]
     Active Substance: CYTARABINE
  4. SPRYCEL [Suspect]
     Active Substance: DASATINIB
     Dates: end: 20240927
  5. DEXAMETHASONE [Suspect]
     Active Substance: DEXAMETHASONE
     Dates: end: 20240908
  6. DOXORUBICIN HYDROCHLORIDE [Suspect]
     Active Substance: DOXORUBICIN HYDROCHLORIDE
     Dates: end: 20240901
  7. MESNA [Suspect]
     Active Substance: MESNA
     Dates: end: 20240901
  8. METHOTREXATE [Suspect]
     Active Substance: METHOTREXATE
     Dates: end: 20240919
  9. VINCRISTINE SULFATE [Suspect]
     Active Substance: VINCRISTINE SULFATE
     Dates: end: 20240909

REACTIONS (8)
  - Anaemia [None]
  - Thrombocytopenia [None]
  - Fatigue [None]
  - Dizziness [None]
  - Decreased appetite [None]
  - Upper respiratory tract infection [None]
  - White blood cell count decreased [None]
  - Neutrophil count decreased [None]

NARRATIVE: CASE EVENT DATE: 20240928
